FAERS Safety Report 5219588-6 (Version None)
Quarter: 2007Q1

REPORT INFORMATION
  Report Type: 
  Country: None (occurrence: None)
  Receive Date: 20070125
  Receipt Date: 20070117
  Transmission Date: 20070707
  Serious: Yes (Hospitalization)
  Sender: FDA-Public Use
  Company Number: US-SHR-US-2007-001619

PATIENT
  Age: 24 Year
  Sex: Female

DRUGS (3)
  1. YASMIN [Suspect]
     Indication: ORAL CONTRACEPTION
     Dosage: 1 TAB(S), 1X/DAY
     Route: 048
     Dates: start: 20060501, end: 20061101
  2. YAZ [Suspect]
     Indication: ORAL CONTRACEPTION
     Dosage: 1 TAB(S), 1X/DAY
     Route: 048
     Dates: start: 20061101
  3. THREELAC [Concomitant]
     Dates: start: 20061101, end: 20070101

REACTIONS (1)
  - PLATELET COUNT DECREASED [None]
